FAERS Safety Report 17582183 (Version 2)
Quarter: 2020Q2

REPORT INFORMATION
  Report Type: Report from Study
  Country: US (occurrence: US)
  Receive Date: 20200325
  Receipt Date: 20200409
  Transmission Date: 20200713
  Serious: Yes (Death, Other)
  Sender: FDA-Public Use
  Company Number: US-ACTELION-A-US2020-203371

PATIENT
  Age: 70 Year
  Sex: Male

DRUGS (9)
  1. OPSUMIT [Suspect]
     Active Substance: MACITENTAN
     Indication: PULMONARY ARTERIAL HYPERTENSION
     Dosage: 10 MG, QD
     Route: 048
     Dates: start: 201810, end: 202002
  2. SPIRIVA [Concomitant]
     Active Substance: TIOTROPIUM BROMIDE MONOHYDRATE
     Dosage: UNK
     Dates: start: 201809
  3. ADVAIR HFA [Concomitant]
     Active Substance: FLUTICASONE PROPIONATE\SALMETEROL XINAFOATE
     Dosage: UNK
     Dates: start: 201809
  4. ATORVASTATIN [Concomitant]
     Active Substance: ATORVASTATIN
     Dosage: 20 UNK, QD
     Dates: start: 201809
  5. ASPIRIN. [Concomitant]
     Active Substance: ASPIRIN
  6. LASIX [Concomitant]
     Active Substance: FUROSEMIDE
     Dosage: 20 UNK
  7. VENTOLIN HFA [Concomitant]
     Active Substance: ALBUTEROL SULFATE
  8. PREDNISONE. [Concomitant]
     Active Substance: PREDNISONE
  9. ATENOLOL. [Concomitant]
     Active Substance: ATENOLOL

REACTIONS (2)
  - Unresponsive to stimuli [Unknown]
  - Sudden cardiac death [Fatal]

NARRATIVE: CASE EVENT DATE: 20200207
